FAERS Safety Report 8964705 (Version 1)
Quarter: 2012Q4

REPORT INFORMATION
  Report Type: 
  Country: US (occurrence: US)
  Receive Date: 20121214
  Receipt Date: 20121214
  Transmission Date: 20130627
  Serious: No
  Sender: FDA-Public Use
  Company Number: US-PFIZER INC-2012312964

PATIENT
  Age: 17 Year
  Sex: Female
  Weight: 60 kg

DRUGS (9)
  1. LEVOXYL [Suspect]
     Indication: THYROID DISORDER NOS
     Dosage: 100 ug, daily
     Dates: start: 200608
  2. LEVOXYL [Suspect]
     Dosage: 88 ug, daily
     Dates: start: 200610
  3. LEVOXYL [Suspect]
     Dosage: 75 ug, daily
  4. LEVOXYL [Suspect]
     Dosage: 50 ug, daily
     Dates: start: 200901
  5. LEVOXYL [Suspect]
     Dosage: 25 ug, daily
     Dates: start: 200904
  6. LEVOXYL [Suspect]
     Dosage: 50 ug, daily
     Dates: start: 200905
  7. LEVOXYL [Suspect]
     Dosage: 62.5 ug, daily
     Dates: start: 200907
  8. LEVOXYL [Suspect]
     Dosage: 37.5 ug, daily
     Dates: start: 201006
  9. LEVOXYL [Suspect]
     Dosage: 37.5 ug, 5 x / week
     Dates: start: 201010

REACTIONS (1)
  - Diarrhoea [Recovered/Resolved]
